FAERS Safety Report 13503143 (Version 1)
Quarter: 2017Q2

REPORT INFORMATION
  Report Type: Spontaneous
  Country: GB (occurrence: GB)
  Receive Date: 20170502
  Receipt Date: 20170502
  Transmission Date: 20170830
  Serious: Yes (Hospitalization)
  Sender: FDA-Public Use
  Company Number: GB-TEVA-762599ACC

PATIENT
  Age: 86 Year
  Sex: Male

DRUGS (9)
  1. BETNOVATE [Concomitant]
     Active Substance: BETAMETHASONE
     Dosage: 2 DOSAGE FORMS DAILY;
  2. BISOPROLOL [Suspect]
     Active Substance: BISOPROLOL
     Indication: CARDIAC FAILURE CHRONIC
     Dosage: 2.5 MILLIGRAM DAILY;
     Route: 048
     Dates: end: 20170407
  3. CLOPIDOGREL [Concomitant]
     Active Substance: CLOPIDOGREL BISULFATE
     Dosage: 75 MILLIGRAM DAILY;
  4. EPADERM [Concomitant]
     Active Substance: MINERAL OIL\PETROLATUM\WAX, EMULSIFYING
     Dosage: AS DIRECTED.
  5. ALLOPURINOL. [Concomitant]
     Active Substance: ALLOPURINOL
     Dosage: 300 MILLIGRAM DAILY;
  6. PANTOPRAZOLE [Concomitant]
     Active Substance: PANTOPRAZOLE
     Dosage: 20 MILLIGRAM DAILY;
  7. ISOSORBIDE MONONITRATE. [Concomitant]
     Active Substance: ISOSORBIDE MONONITRATE
     Dosage: 20 MILLIGRAM DAILY;
  8. RAMIPRIL. [Suspect]
     Active Substance: RAMIPRIL
     Indication: CARDIAC FAILURE CHRONIC
     Dosage: 5 MILLIGRAM DAILY;
     Route: 048
     Dates: end: 20170407
  9. BUMETANIDE. [Suspect]
     Active Substance: BUMETANIDE
     Dosage: 1 MILLIGRAM DAILY;
     Route: 048
     Dates: end: 20170407

REACTIONS (3)
  - Oedema [Unknown]
  - Acute kidney injury [Recovering/Resolving]
  - Balance disorder [Recovering/Resolving]
